FAERS Safety Report 5446219-2 (Version None)
Quarter: 2007Q3

REPORT INFORMATION
  Report Type: 
  Country: None (occurrence: None)
  Receive Date: 20070731
  Receipt Date: 20070126
  Transmission Date: 20080115
  Serious: Yes (Other)
  Sender: FDA-Public Use
  Company Number: US-2007-003166

PATIENT
  Age: 33 Year
  Sex: Female
  Weight: 59 kg

DRUGS (1)
  1. MAGNEVIST INJECTION(GADOPENTETATE DIMEGLUMINE) INJECTION [Suspect]
     Indication: NUCLEAR MAGNETIC RESONANCE IMAGING BRAIN
     Dosage: 10 ML, 1 DOSE, INTRAVENOUS
     Route: 042
     Dates: start: 20060724, end: 20060724

REACTIONS (14)
  - ANAPHYLACTIC REACTION [None]
  - CHOKING SENSATION [None]
  - COUGH [None]
  - DYSPNOEA [None]
  - EYE IRRITATION [None]
  - EYELIDS PRURITUS [None]
  - FEELING ABNORMAL [None]
  - HEART RATE INCREASED [None]
  - HYPOTENSION [None]
  - PRURITUS [None]
  - RESTLESSNESS [None]
  - TREMOR [None]
  - URTICARIA [None]
  - WHEEZING [None]
